FAERS Safety Report 13662845 (Version 1)
Quarter: 2017Q2

REPORT INFORMATION
  Report Type: Spontaneous
  Country: US (occurrence: US)
  Receive Date: 20170616
  Receipt Date: 20170616
  Transmission Date: 20170830
  Serious: Yes (Life-Threatening, Hospitalization)
  Sender: FDA-Public Use
  Company Number: None

PATIENT
  Age: 53 Year
  Sex: Female
  Weight: 120.5 kg

DRUGS (8)
  1. LAMOTRIGINE 100 MG [Concomitant]
     Active Substance: LAMOTRIGINE
  2. WOMEN^S MULTIVITAMIN [Concomitant]
  3. VILAZODONE 40 MG [Concomitant]
  4. PROBIOTIC LACTOBACILLUS [Concomitant]
  5. LURASIDONE 20 MG [Concomitant]
  6. LISDEXAMFETAMINE 40 MG [Concomitant]
  7. VICTOZA [Suspect]
     Active Substance: LIRAGLUTIDE
     Indication: TYPE 2 DIABETES MELLITUS
     Route: 058
     Dates: start: 20170310, end: 20170611
  8. HOME MEDICATIONS [Concomitant]

REACTIONS (8)
  - Acute hepatic failure [None]
  - Hepatitis fulminant [None]
  - Asterixis [None]
  - Gingival bleeding [None]
  - Autoimmune hepatitis [None]
  - Coagulopathy [None]
  - Mental status changes [None]
  - Drug use disorder [None]

NARRATIVE: CASE EVENT DATE: 20170616
